FAERS Safety Report 20713623 (Version 1)
Quarter: 2022Q2

REPORT INFORMATION
  Report Type: Report from Study
  Country: IN (occurrence: IN)
  Receive Date: 20220415
  Receipt Date: 20220415
  Transmission Date: 20220721
  Serious: Yes (Hospitalization, Other)
  Sender: FDA-Public Use
  Company Number: IN-NOVARTISPH-PHHY2018IN072867

PATIENT
  Age: 40 Year
  Sex: Male
  Weight: 70 kg

DRUGS (17)
  1. SIMULECT [Suspect]
     Active Substance: BASILIXIMAB
     Indication: Renal transplant
     Dosage: 20 MG
     Route: 042
     Dates: start: 20180321
  2. SIMULECT [Suspect]
     Active Substance: BASILIXIMAB
     Dosage: 20 MG (2 DOSES)
     Route: 065
  3. MYCOPHENOLATE MOFETIL [Concomitant]
     Active Substance: MYCOPHENOLATE MOFETIL
     Indication: Immunosuppression
     Dosage: UNK
     Route: 065
  4. TACROLIMUS [Concomitant]
     Active Substance: TACROLIMUS
     Indication: Immunosuppression
     Dosage: UNK
     Route: 065
  5. CEFTUM [Concomitant]
     Indication: Product used for unknown indication
     Dosage: 250 MG, BID
     Route: 065
  6. LOXOF [Concomitant]
     Indication: Product used for unknown indication
     Dosage: 250 MG, QD
     Route: 065
  7. TACROREN [Concomitant]
     Indication: Product used for unknown indication
     Dosage: 2 DOSAGE FORM, BID (1 MG)
     Route: 065
  8. IMMUTIL S [Concomitant]
     Indication: Product used for unknown indication
     Dosage: 2 DOSAGE FORM, BID (360 MG)
     Route: 065
  9. PREDNISOLONE [Concomitant]
     Active Substance: PREDNISOLONE
     Indication: Product used for unknown indication
     Dosage: 60 MG, QD
     Route: 065
  10. PANTOCID DSR [Concomitant]
     Indication: Product used for unknown indication
     Dosage: UNK, QD
     Route: 065
  11. TORSEMIDE [Concomitant]
     Active Substance: TORSEMIDE
     Indication: Product used for unknown indication
     Dosage: 40 MG, QD
     Route: 065
  12. ROPARK [Concomitant]
     Indication: Product used for unknown indication
     Dosage: 0.5 MG (HS)
     Route: 065
  13. NIFEDIPINE [Concomitant]
     Active Substance: NIFEDIPINE
     Indication: Product used for unknown indication
     Dosage: 20 MG (TDS)
     Route: 065
  14. METOPROLOL [Concomitant]
     Active Substance: METOPROLOL
     Indication: Product used for unknown indication
     Dosage: 50 MG, BID
     Route: 065
  15. ARKAMIN [Concomitant]
     Indication: Product used for unknown indication
     Dosage: 0.5 DOSAGE FORM (TDS)
     Route: 065
  16. LANOL [Concomitant]
     Indication: Product used for unknown indication
     Dosage: UNK (SOS FOR FEVER AND PAIN)
     Route: 065
  17. ONDANSETRON HYDROCHLORIDE [Concomitant]
     Active Substance: ONDANSETRON HYDROCHLORIDE
     Indication: Product used for unknown indication
     Dosage: 4 MG (SOS FOR VOMITING)
     Route: 065

REACTIONS (9)
  - Kidney transplant rejection [Not Recovered/Not Resolved]
  - Renal impairment [Unknown]
  - Glomerulonephritis [Unknown]
  - Renal tubular injury [Unknown]
  - Renal tubular necrosis [Unknown]
  - Urine output decreased [Unknown]
  - Kidney congestion [Unknown]
  - Capillaritis [Unknown]
  - Blood creatinine increased [Unknown]

NARRATIVE: CASE EVENT DATE: 20180401
